FAERS Safety Report 9509716 (Version 2)
Quarter: 2013Q3

REPORT INFORMATION
  Report Type: Spontaneous
  Country: US (occurrence: US)
  Receive Date: 20130909
  Receipt Date: 20130909
  Transmission Date: 20140515
  Serious: Yes (Hospitalization)
  Sender: FDA-Public Use
  Company Number: US-BRISTOL-MYERS SQUIBB COMPANY-17162330

PATIENT
  Age: 76 Year
  Sex: Male
  Weight: 77.1 kg

DRUGS (3)
  1. ABILIFY [Suspect]
     Dates: start: 20121004, end: 20121217
  2. CELEXA [Concomitant]
  3. ASPIRIN [Concomitant]

REACTIONS (1)
  - Adverse event [Unknown]
